FAERS Safety Report 4661677-9 (Version None)
Quarter: 2005Q2

REPORT INFORMATION
  Report Type: 
  Country: None (occurrence: None)
  Receive Date: 20050513
  Receipt Date: 20050502
  Transmission Date: 20051028
  Serious: Yes (Death)
  Sender: FDA-Public Use
  Company Number: ID-BRISTOL-MYERS SQUIBB COMPANY-12966008

PATIENT
  Sex: Female

DRUGS (1)
  1. DAIVONEX [Suspect]
     Indication: PSORIASIS
     Route: 061
     Dates: start: 20041101, end: 20050301

REACTIONS (2)
  - INTRA-UTERINE DEATH [None]
  - PREGNANCY [None]
